FAERS Safety Report 18784579 (Version 9)
Quarter: 2021Q4

REPORT INFORMATION
  Report Type: Report from Study
  Country: MX (occurrence: MX)
  Receive Date: 20210125
  Receipt Date: 20211110
  Transmission Date: 20220303
  Serious: Yes (Other)
  Sender: FDA-Public Use
  Company Number: MX-TAKEDA-MX202020306

PATIENT
  Age: 12 Year
  Sex: Male
  Weight: 41 kg

DRUGS (5)
  1. IDURSULFASE [Suspect]
     Active Substance: IDURSULFASE
     Indication: Mucopolysaccharidosis II
     Dosage: 3 MILLILITER, 6MG/ML 3 VIALS
     Route: 042
     Dates: start: 20130601
  2. IDURSULFASE [Suspect]
     Active Substance: IDURSULFASE
     Dosage: 3 VIALS, 3 MILLILITER VIAL, 6MG/ML 3 VIALS
     Route: 042
     Dates: start: 20130601
  3. IDURSULFASE [Suspect]
     Active Substance: IDURSULFASE
     Dosage: 18 MILLIGRAM, 6MG/3ML 3 VIALS
     Route: 042
     Dates: start: 20130601
  4. IDURSULFASE [Suspect]
     Active Substance: IDURSULFASE
     Dosage: 12 MILLIGRAM 2VIAL, QD
     Route: 042
     Dates: start: 20130601
  5. IDURSULFASE [Suspect]
     Active Substance: IDURSULFASE
     Dosage: 12 MILLIGRAM, 1/WEEK
     Route: 042
     Dates: start: 20130601

REACTIONS (5)
  - Suspected COVID-19 [Unknown]
  - Rhinorrhoea [Not Recovered/Not Resolved]
  - Therapy interrupted [Recovered/Resolved]
  - Product dose omission issue [Unknown]
  - Product availability issue [Recovered/Resolved]

NARRATIVE: CASE EVENT DATE: 20200617
